FAERS Safety Report 7042706-4 (Version None)
Quarter: 2010Q4

REPORT INFORMATION
  Report Type: 
  Country: None (occurrence: None)
  Receive Date: 20101013
  Receipt Date: 20090819
  Transmission Date: 20110411
  Serious: No
  Sender: FDA-Public Use
  Company Number: US-ASTRAZENECA-2009UW18532

PATIENT
  Sex: Female
  Weight: 53.5 kg

DRUGS (3)
  1. SYMBICORT [Suspect]
     Indication: ASTHMA
     Route: 055
  2. CRESTOR [Concomitant]
  3. COMBIVENT [Concomitant]

REACTIONS (1)
  - DYSPNOEA [None]
